FAERS Safety Report 20314660 (Version 2)
Quarter: 2022Q1

REPORT INFORMATION
  Report Type: Spontaneous
  Country: US (occurrence: None)
  Receive Date: 20220109
  Receipt Date: 20220302
  Transmission Date: 20220423
  Serious: No
  Sender: FDA-Public Use
  Company Number: 2021A907254

PATIENT
  Age: 27480 Day
  Sex: Female
  Weight: 61.2 kg

DRUGS (1)
  1. BUDESONIDE\FORMOTEROL\GLYCOPYRRONIUM [Suspect]
     Active Substance: BUDESONIDE\FORMOTEROL\GLYCOPYRRONIUM
     Indication: Emphysema
     Dosage: 160/9/4.8MCG, 120 INHALATIONS,TWO TIMES A DAY.
     Route: 055
     Dates: start: 2020

REACTIONS (6)
  - Abdominal pain upper [Unknown]
  - Back pain [Unknown]
  - Dyspnoea [Unknown]
  - Chest discomfort [Unknown]
  - Product dose omission issue [Unknown]
  - Device delivery system issue [Unknown]

NARRATIVE: CASE EVENT DATE: 20211224
